FAERS Safety Report 11679498 (Version 2)
Quarter: 2015Q4

REPORT INFORMATION
  Report Type: Spontaneous
  Country: US (occurrence: US)
  Receive Date: 20151028
  Receipt Date: 20151220
  Transmission Date: 20160304
  Serious: No
  Sender: FDA-Public Use
  Company Number: US-009507513-1510USA013325

PATIENT
  Sex: Female

DRUGS (3)
  1. GEMCITABINE [Concomitant]
     Active Substance: GEMCITABINE\GEMCITABINE HYDROCHLORIDE
     Indication: PANCREATIC CARCINOMA
     Dosage: TWO WEEKS ON AND ONE WEEK OFF
     Dates: start: 201410
  2. EMEND [Suspect]
     Active Substance: APREPITANT
  3. ABRAXANE [Concomitant]
     Active Substance: PACLITAXEL
     Indication: PANCREATIC CARCINOMA
     Dosage: TWO WEEKS ON AND ONE WEEK OFF
     Dates: start: 201410

REACTIONS (1)
  - Intestinal obstruction [Unknown]
